FAERS Safety Report 11361680 (Version 1)
Quarter: 2015Q3

REPORT INFORMATION
  Report Type: Spontaneous
  Country: US (occurrence: US)
  Receive Date: 20150810
  Receipt Date: 20150810
  Transmission Date: 20151125
  Serious: No
  Sender: FDA-Public Use
  Company Number: US-TEVA-584347USA

PATIENT
  Sex: Male

DRUGS (2)
  1. MUCINEX [Concomitant]
     Active Substance: GUAIFENESIN
  2. PROAIR HFA [Suspect]
     Active Substance: ALBUTEROL SULFATE
     Indication: PRODUCT USED FOR UNKNOWN INDICATION
     Route: 055
     Dates: start: 20150721

REACTIONS (6)
  - Abdominal discomfort [Unknown]
  - Palpitations [Unknown]
  - Chest discomfort [Unknown]
  - Feeling abnormal [Unknown]
  - Feeling jittery [Unknown]
  - Insomnia [Unknown]

NARRATIVE: CASE EVENT DATE: 201507
